FAERS Safety Report 18633633 (Version 1)
Quarter: 2020Q4

REPORT INFORMATION
  Report Type: Spontaneous
  Country: GB (occurrence: GB)
  Receive Date: 20201218
  Receipt Date: 20201218
  Transmission Date: 20210114
  Serious: Yes (Other)
  Sender: FDA-Public Use
  Company Number: GB-PFIZER INC-2020495986

PATIENT
  Age: 80 Year
  Sex: Male
  Weight: 85 kg

DRUGS (8)
  1. IBUPROFEN. [Suspect]
     Active Substance: IBUPROFEN
     Dosage: UNK
     Dates: start: 20201127
  2. FUROSEMIDE. [Concomitant]
     Active Substance: FUROSEMIDE
     Dosage: 2 DF, 1X/DAY
     Dates: start: 20200602
  3. ATORVASTATIN [Concomitant]
     Active Substance: ATORVASTATIN
     Dosage: 1 DF, 1X/DAY
     Dates: start: 20200602
  4. IRBESARTAN. [Concomitant]
     Active Substance: IRBESARTAN
     Dosage: 1 DF, 1X/DAY
     Dates: start: 20200602
  5. COLECALCIFEROL [Concomitant]
     Active Substance: CHOLECALCIFEROL
     Dosage: 1 DF, MONTHLY(MAINTENANCE: OVER 18YEARS)
     Dates: start: 20201105
  6. IBUPROFEN. [Concomitant]
     Active Substance: IBUPROFEN
     Dosage: 3 DF, 1X/DAY
     Dates: start: 20200602, end: 20200901
  7. AMLODIPINE [Concomitant]
     Active Substance: AMLODIPINE BESYLATE
     Dosage: 1 DF, 1X/DAY
     Dates: start: 20200602
  8. DOXAZOSIN [Concomitant]
     Active Substance: DOXAZOSIN MESYLATE
     Dosage: 2 DF, 1X/DAY
     Dates: start: 20200602, end: 20200914

REACTIONS (2)
  - Glomerular filtration rate increased [Recovered/Resolved]
  - Renal impairment [Recovered/Resolved]

NARRATIVE: CASE EVENT DATE: 20201129
